FAERS Safety Report 12744436 (Version 1)
Quarter: 2016Q3

REPORT INFORMATION
  Report Type: Spontaneous
  Country: US (occurrence: US)
  Receive Date: 20160914
  Receipt Date: 20160914
  Transmission Date: 20161109
  Serious: No
  Sender: FDA-Public Use
  Company Number: US-JAZZ-2016-US-009349

PATIENT
  Age: 58 Year
  Sex: Female

DRUGS (37)
  1. GUAIFENESIN. [Concomitant]
     Active Substance: GUAIFENESIN
  2. PROPAFENONE HCL [Concomitant]
     Active Substance: PROPAFENONE HYDROCHLORIDE
  3. DIPHENHYDRAMINE. [Concomitant]
     Active Substance: DIPHENHYDRAMINE
  4. COUMADIN [Concomitant]
     Active Substance: WARFARIN SODIUM
  5. PROTONIX [Concomitant]
     Active Substance: PANTOPRAZOLE SODIUM
  6. RESTASIS [Concomitant]
     Active Substance: CYCLOSPORINE
  7. LASIX [Concomitant]
     Active Substance: FUROSEMIDE
  8. ERTAPENEM [Concomitant]
     Active Substance: ERTAPENEM
  9. XYREM [Suspect]
     Active Substance: SODIUM OXYBATE
     Indication: CATAPLEXY
  10. DIPHENHYDRAMINE. [Concomitant]
     Active Substance: DIPHENHYDRAMINE
     Dosage: 25 MG, UNK
  11. HEPARIN FLUSH [Concomitant]
     Active Substance: HEPARIN SODIUM
  12. TERBINAFINE HCL [Concomitant]
     Active Substance: TERBINAFINE HYDROCHLORIDE
  13. POTASSIUM CL [Concomitant]
     Active Substance: POTASSIUM CHLORIDE
     Dosage: 20 MEQ, UNK
  14. SYNTHROID [Concomitant]
     Active Substance: LEVOTHYROXINE SODIUM
  15. CUBICIN [Concomitant]
     Active Substance: DAPTOMYCIN
  16. HYDROXYZINE [Concomitant]
     Active Substance: HYDROXYZINE\HYDROXYZINE HYDROCHLORIDE
  17. OXYGEN. [Concomitant]
     Active Substance: OXYGEN
  18. ACETAMINOPHEN. [Concomitant]
     Active Substance: ACETAMINOPHEN
  19. BENADRYL [Concomitant]
     Active Substance: DIPHENHYDRAMINE HYDROCHLORIDE
  20. HYDROMORPHONE HCL [Concomitant]
     Active Substance: HYDROMORPHONE HYDROCHLORIDE
  21. MEBENDAZOLE. [Concomitant]
     Active Substance: MEBENDAZOLE
  22. PREDNISONE. [Concomitant]
     Active Substance: PREDNISONE
  23. VISTARIL [Concomitant]
     Active Substance: HYDROXYZINE PAMOATE
  24. POTASSIUM CL [Concomitant]
     Active Substance: POTASSIUM CHLORIDE
     Dosage: 10 MEQ, UNK
  25. SIMVASTATIN. [Concomitant]
     Active Substance: SIMVASTATIN
  26. ALBENZA [Concomitant]
     Active Substance: ALBENDAZOLE
  27. HYDROXYZINE HCL [Concomitant]
     Active Substance: HYDROXYZINE HYDROCHLORIDE
  28. PRAMIPEXOLE. [Concomitant]
     Active Substance: PRAMIPEXOLE
  29. NARDIL [Concomitant]
     Active Substance: PHENELZINE SULFATE
  30. PROMETHAZINE [Concomitant]
     Active Substance: PROMETHAZINE\PROMETHAZINE HYDROCHLORIDE
  31. SPIRONOLACTONE. [Concomitant]
     Active Substance: SPIRONOLACTONE
  32. XYREM [Suspect]
     Active Substance: SODIUM OXYBATE
     Indication: NARCOLEPSY
     Dosage: 4.5 G, BID
     Route: 048
     Dates: start: 201502
  33. AMLACTIN [Concomitant]
     Active Substance: AMMONIUM LACTATE
  34. SILVADENE [Concomitant]
     Active Substance: SILVER SULFADIAZINE
  35. ASPIRIN. [Concomitant]
     Active Substance: ASPIRIN
  36. FUROSEMIDE. [Concomitant]
     Active Substance: FUROSEMIDE
  37. INVANZ [Concomitant]
     Active Substance: ERTAPENEM SODIUM

REACTIONS (2)
  - Fall [Recovered/Resolved]
  - Muscle strain [Unknown]

NARRATIVE: CASE EVENT DATE: 201605
